FAERS Safety Report 15934102 (Version 1)
Quarter: 2019Q1

REPORT INFORMATION
  Report Type: Report from Study
  Country: BR (occurrence: BR)
  Receive Date: 20190207
  Receipt Date: 20190207
  Transmission Date: 20190417
  Serious: Yes (Hospitalization, Other)
  Sender: FDA-Public Use
  Company Number: PHHY2017BR098715

PATIENT
  Age: 57 Year
  Sex: Male
  Weight: 102 kg

DRUGS (6)
  1. VOTRIENT [Suspect]
     Active Substance: PAZOPANIB HYDROCHLORIDE
     Dosage: 2 DF, QD
     Route: 048
     Dates: start: 20180617
  2. VOTRIENT [Suspect]
     Active Substance: PAZOPANIB HYDROCHLORIDE
     Indication: METASTATIC RENAL CELL CARCINOMA
     Dosage: 2 DF, QD (WITH WATER)
     Route: 048
     Dates: start: 20170617
  3. VOTRIENT [Suspect]
     Active Substance: PAZOPANIB HYDROCHLORIDE
     Dosage: 2 DF, QD
     Route: 048
     Dates: end: 20180630
  4. VOTRIENT [Suspect]
     Active Substance: PAZOPANIB HYDROCHLORIDE
     Dosage: 2 DF, QD
     Route: 048
  5. TONOPAN [DICLOFENAC POTASSIUM] [Suspect]
     Active Substance: DICLOFENAC POTASSIUM
     Indication: HEADACHE
     Route: 065
  6. VOTRIENT [Suspect]
     Active Substance: PAZOPANIB HYDROCHLORIDE
     Dosage: 2 DF, QD
     Route: 048

REACTIONS (17)
  - Hair colour changes [Not Recovered/Not Resolved]
  - Weight increased [Unknown]
  - Weight decreased [Unknown]
  - Headache [Unknown]
  - Blood urine present [Unknown]
  - Metastases to skin [Not Recovered/Not Resolved]
  - Migraine [Unknown]
  - Neoplasm [Unknown]
  - Stress [Not Recovered/Not Resolved]
  - Thyroid disorder [Not Recovered/Not Resolved]
  - Abdominal pain [Unknown]
  - Anal haemorrhage [Recovering/Resolving]
  - Influenza [Unknown]
  - Diarrhoea [Not Recovered/Not Resolved]
  - Anxiety [Recovering/Resolving]
  - Haemorrhoids [Not Recovered/Not Resolved]
  - Blood pressure increased [Not Recovered/Not Resolved]
